FAERS Safety Report 22356145 (Version 1)
Quarter: 2023Q2

REPORT INFORMATION
  Report Type: Spontaneous
  Country: US (occurrence: None)
  Receive Date: 20230523
  Receipt Date: 20230523
  Transmission Date: 20230722
  Serious: Yes (Hospitalization)
  Sender: FDA-Public Use
  Company Number: None

PATIENT
  Sex: Female

DRUGS (1)
  1. DEFERASIROX [Suspect]
     Active Substance: DEFERASIROX
     Dosage: FREQUENCY : TWICE A DAY;?
     Route: 048

REACTIONS (4)
  - Viral infection [None]
  - Pyrexia [None]
  - Urticaria [None]
  - Therapy interrupted [None]
